FAERS Safety Report 5958603-9 (Version None)
Quarter: 2008Q4

REPORT INFORMATION
  Report Type: 
  Country: None (occurrence: None)
  Receive Date: 20081110
  Receipt Date: 20081012
  Transmission Date: 20090506
  Serious: Yes (Death, Other)
  Sender: FDA-Public Use
  Company Number: CHPA2008US18023

PATIENT
  Age: 45 Year
  Sex: Female

DRUGS (7)
  1. DIPHENHYDRAMINE HCL [Suspect]
  2. FENTANYL-100 [Suspect]
  3. AMLODIPINE BESYLATE AND BENAZEPRIL HCL [Suspect]
  4. QUETIAPINE FUMARATE [Suspect]
  5. CITALOPRAM HYDROBROMIDE [Suspect]
  6. MIRTAZAPINE [Suspect]
  7. PROMETHAZINE [Suspect]

REACTIONS (1)
  - DEATH [None]
